FAERS Safety Report 5213257-4 (Version None)
Quarter: 2007Q1

REPORT INFORMATION
  Report Type: 
  Country: None (occurrence: None)
  Receive Date: 20070117
  Receipt Date: 20070117
  Transmission Date: 20070707
  Serious: Yes (Hospitalization)
  Sender: FDA-Public Use
  Company Number: None

PATIENT
  Age: 57 Year
  Sex: Female

DRUGS (3)
  1. LEVAQUIN [Suspect]
     Indication: URINARY TRACT INFECTION
     Dosage: 500MG DAILY PO
     Route: 048
     Dates: start: 20061109, end: 20061114
  2. ALTACE [Concomitant]
  3. AVONEX [Concomitant]

REACTIONS (3)
  - DRUG EFFECT DECREASED [None]
  - MOUTH HAEMORRHAGE [None]
  - THROMBOCYTOPENIA [None]
